FAERS Safety Report 8677828 (Version 3)
Quarter: 2015Q1

REPORT INFORMATION
  Report Type: Report from Study
  Country: US (occurrence: US)
  Receive Date: 20120723
  Receipt Date: 20150105
  Transmission Date: 20150721
  Serious: Yes (Other)
  Sender: FDA-Public Use
  Company Number: US-ASTRAZENECA-2012SE48806

PATIENT
  Age: 15923 Day
  Sex: Female
  Weight: 48.8 kg

DRUGS (7)
  1. SIROLIMUS. [Suspect]
     Active Substance: SIROLIMUS
     Indication: GLIOBLASTOMA MULTIFORME
     Route: 048
     Dates: start: 20120620, end: 20120710
  2. CITALOPRAM [Concomitant]
     Active Substance: CITALOPRAM HYDROBROMIDE
  3. BACTRIM DA [Concomitant]
  4. AZD6474 [Suspect]
     Active Substance: VANDETANIB
     Indication: GLIOBLASTOMA MULTIFORME
     Route: 048
     Dates: start: 20120620
  5. ATIVAN [Concomitant]
     Active Substance: LORAZEPAM
  6. ADDERALL XR [Concomitant]
     Active Substance: AMPHETAMINE ASPARTATE\AMPHETAMINE SULFATE\DEXTROAMPHETAMINE SACCHARATE\DEXTROAMPHETAMINE SULFATE
  7. KEPPRA [Concomitant]
     Active Substance: LEVETIRACETAM

REACTIONS (3)
  - Lymphocyte count decreased [Unknown]
  - White blood cell count decreased [Unknown]
  - Platelet count decreased [Unknown]

NARRATIVE: CASE EVENT DATE: 20120709
